FAERS Safety Report 4955061-8 (Version None)
Quarter: 2006Q1

REPORT INFORMATION
  Report Type: 
  Country: None (occurrence: None)
  Receive Date: 20060322
  Receipt Date: 20060302
  Transmission Date: 20060701
  Serious: Yes (Hospitalization)
  Sender: FDA-Public Use
  Company Number: US200512004220

PATIENT
  Age: 83 Year
  Sex: Female

DRUGS (3)
  1. FORTEO [Suspect]
     Indication: OSTEOARTHRITIS
  2. FORTEO (FORTEO PEN)                  PEN, DISPOSABLE [Concomitant]
  3. ZOLOFT [Concomitant]

REACTIONS (3)
  - COMPRESSION FRACTURE [None]
  - FALL [None]
  - FEMUR FRACTURE [None]
